FAERS Safety Report 15042549 (Version 2)
Quarter: 2018Q3

REPORT INFORMATION
  Report Type: Report from Study
  Country: DO (occurrence: DO)
  Receive Date: 20180621
  Receipt Date: 20180719
  Transmission Date: 20181010
  Serious: No
  Sender: FDA-Public Use
  Company Number: PHHY2017DO108343

PATIENT
  Sex: Female
  Weight: 58.96 kg

DRUGS (2)
  1. TETANUS TOXOID ADSORBED (VACCINE) [Suspect]
     Active Substance: CLOSTRIDIUM TETANI TOXOID ANTIGEN (FORMALDEHYDE INACTIVATED)
     Indication: PRODUCT USED FOR UNKNOWN INDICATION
     Route: 065
  2. GILENYA [Suspect]
     Active Substance: FINGOLIMOD HYDROCHLORIDE
     Indication: MULTIPLE SCLEROSIS
     Dosage: 0.5 MG, QD
     Route: 048
     Dates: start: 20170712

REACTIONS (20)
  - Malaise [Unknown]
  - Influenza [Recovered/Resolved]
  - Contusion [Unknown]
  - Upper respiratory tract congestion [Unknown]
  - Diarrhoea [Unknown]
  - Laceration [Unknown]
  - Sleep disorder [Unknown]
  - Headache [Recovered/Resolved]
  - Heart rate increased [Recovered/Resolved]
  - Pyrexia [Unknown]
  - Nasal congestion [Unknown]
  - Visual impairment [Unknown]
  - Hypotension [Unknown]
  - Heart rate decreased [Recovered/Resolved]
  - Self-medication [None]
  - Anxiety [Unknown]
  - Injury [Recovering/Resolving]
  - Pain [Recovering/Resolving]
  - Haematoma [Unknown]
  - Fatigue [Recovering/Resolving]
